FAERS Safety Report 15388277 (Version 1)
Quarter: 2018Q3

REPORT INFORMATION
  Report Type: Spontaneous
  Country: FR (occurrence: FR)
  Receive Date: 20180915
  Receipt Date: 20180915
  Transmission Date: 20181010
  Serious: Yes (Other)
  Sender: FDA-Public Use
  Company Number: FR-SUN PHARMACEUTICAL INDUSTRIES LTD-2018RR-184459

PATIENT
  Age: 85 Year
  Sex: Female

DRUGS (5)
  1. VALACICLOVIR [Suspect]
     Active Substance: VALACYCLOVIR HYDROCHLORIDE
     Indication: PROPHYLAXIS
     Dosage: NON RENSEIGNEE ()
     Route: 048
     Dates: start: 20180525
  2. PANTOPRAZOLE [Concomitant]
     Active Substance: PANTOPRAZOLE
     Indication: PRODUCT USED FOR UNKNOWN INDICATION
     Dosage: ()
     Route: 065
     Dates: start: 20180525, end: 20180615
  3. ALKERAN [Concomitant]
     Active Substance: MELPHALAN
     Indication: PLASMA CELL MYELOMA
     Dosage: CURE 4 ()
     Route: 065
     Dates: start: 20180601, end: 20180615
  4. CORTANCYL [Concomitant]
     Active Substance: PREDNISONE
     Indication: PLASMA CELL MYELOMA
     Dosage: CURE 4 ()
     Route: 065
     Dates: start: 20180601, end: 20180615
  5. VELCADE [Concomitant]
     Active Substance: BORTEZOMIB
     Indication: PLASMA CELL MYELOMA
     Dosage: CURE 4 ()
     Route: 048
     Dates: start: 20180601, end: 20180615

REACTIONS (1)
  - Toxic skin eruption [Not Recovered/Not Resolved]

NARRATIVE: CASE EVENT DATE: 20180602
